FAERS Safety Report 9338731 (Version 1)
Quarter: 2013Q2

REPORT INFORMATION
  Report Type: Spontaneous
  Country: US (occurrence: None)
  Receive Date: 20130605
  Receipt Date: 20130605
  Transmission Date: 20140414
  Serious: Yes (Disabling)
  Sender: FDA-Public Use
  Company Number: None

PATIENT
  Age: 73 Year
  Sex: Male
  Weight: 116 kg

DRUGS (2)
  1. XGEVA-DENOSUMAB [Suspect]
     Route: 042
     Dates: start: 20120313, end: 20130319
  2. XGEVA-DENOSUMAB [Suspect]
     Route: 042
     Dates: start: 20120313, end: 20130319

REACTIONS (1)
  - Osteonecrosis of jaw [None]
